FAERS Safety Report 7438471-9 (Version None)
Quarter: 2011Q2

REPORT INFORMATION
  Report Type: 
  Country: None (occurrence: None)
  Receive Date: 20110426
  Receipt Date: 20110419
  Transmission Date: 20111010
  Serious: Yes (Other)
  Sender: FDA-Public Use
  Company Number: CHPA2011US05749

PATIENT
  Sex: Female
  Weight: 111.11 kg

DRUGS (9)
  1. SLOW FE BROWN [Suspect]
     Indication: BLOOD IRON DECREASED
     Dosage: UNK, UNK
     Route: 048
     Dates: start: 20100701
  2. LASIX [Concomitant]
     Indication: DIURETIC THERAPY
     Dosage: 20 MG, QD
     Route: 048
     Dates: start: 20080101
  3. ZOCOR [Concomitant]
     Indication: BLOOD CHOLESTEROL INCREASED
     Dosage: 40 MG, QD
     Route: 048
     Dates: start: 20100101
  4. PROCRIT                            /00909301/ [Suspect]
     Indication: NEPHROGENIC ANAEMIA
     Dosage: 10000 IU, UNK
     Route: 058
     Dates: start: 20091001, end: 20100101
  5. ACCUPRIL [Concomitant]
     Indication: RENAL DISORDER
     Dosage: 40 MG, QD
     Route: 048
     Dates: start: 19990101
  6. PROCRIT                            /00909301/ [Suspect]
     Dosage: 20000 IU, UNK
     Route: 058
     Dates: start: 20100101
  7. TRANDATE [Concomitant]
     Dosage: 200 MG, QD
     Route: 048
     Dates: start: 19800101
  8. GLUCOTROL [Concomitant]
     Indication: DIABETES MELLITUS
     Dosage: 5 MG, QD
     Route: 048
     Dates: start: 19940101
  9. DRUG THERAPY NOS [Concomitant]
     Indication: PROPHYLAXIS
     Dosage: 2 UNK, QD
     Route: 048
     Dates: start: 20080101

REACTIONS (12)
  - RED BLOOD CELL COUNT DECREASED [None]
  - HAEMATOCRIT DECREASED [None]
  - SERUM FERRITIN DECREASED [None]
  - GLOMERULAR FILTRATION RATE DECREASED [None]
  - PLATELET COUNT INCREASED [None]
  - BLOOD IRON DECREASED [None]
  - HAEMOGLOBIN DECREASED [None]
  - POLLAKIURIA [None]
  - BLOOD CHOLESTEROL DECREASED [None]
  - TRANSFERRIN SATURATION DECREASED [None]
  - BLOOD UREA INCREASED [None]
  - BLOOD CREATININE INCREASED [None]
